FAERS Safety Report 8126159-0 (Version None)
Quarter: 2012Q1

REPORT INFORMATION
  Report Type: 
  Country: None (occurrence: None)
  Receive Date: 20120209
  Receipt Date: 20120203
  Transmission Date: 20120608
  Serious: Yes (Other)
  Sender: FDA-Public Use
  Company Number: PHEH2008US04335

PATIENT
  Sex: Female

DRUGS (14)
  1. AREDIA [Suspect]
  2. RADIATION THERAPY [Concomitant]
  3. FEMARA [Concomitant]
  4. FOSAMAX [Suspect]
  5. AMOXICILLIN [Concomitant]
     Dosage: 500 MG, UNK
  6. ADRIAMYCIN PFS [Concomitant]
  7. CYTOXAN [Concomitant]
  8. CHEMOTHERAPEUTICS [Concomitant]
  9. CEPHALEXIN [Concomitant]
  10. TAMOXIFEN CITRATE [Concomitant]
  11. AROMASIN [Concomitant]
  12. ARIMIDEX [Concomitant]
  13. ACETAMINOPHEN [Concomitant]
  14. VITAMIN E [Concomitant]

REACTIONS (39)
  - DENTURE WEARER [None]
  - HYPOAESTHESIA [None]
  - EXOSTOSIS [None]
  - PALMAR-PLANTAR ERYTHRODYSAESTHESIA SYNDROME [None]
  - ONYCHOMYCOSIS [None]
  - DECREASED APPETITE [None]
  - OSTEONECROSIS OF JAW [None]
  - DISABILITY [None]
  - ANXIETY [None]
  - FALL [None]
  - RADICULOPATHY [None]
  - BACK PAIN [None]
  - OROPHARYNGEAL PAIN [None]
  - METASTASES TO LUNG [None]
  - NEUROPATHY PERIPHERAL [None]
  - OSTEOARTHRITIS [None]
  - PLEURAL FIBROSIS [None]
  - METASTASES TO LIVER [None]
  - INJURY [None]
  - PAIN [None]
  - KIDNEY INFECTION [None]
  - BREAST TENDERNESS [None]
  - DIABETES MELLITUS [None]
  - ONYCHOGRYPHOSIS [None]
  - HYPERCHOLESTEROLAEMIA [None]
  - EFFUSION [None]
  - CENTRAL NERVOUS SYSTEM LESION [None]
  - METASTASES TO CENTRAL NERVOUS SYSTEM [None]
  - HEPATIC STEATOSIS [None]
  - ARTHRITIS [None]
  - VISION BLURRED [None]
  - BULLOUS LUNG DISEASE [None]
  - NEOPLASM MALIGNANT [None]
  - INGROWING NAIL [None]
  - WEIGHT DECREASED [None]
  - ANHEDONIA [None]
  - NEOPLASM PROGRESSION [None]
  - METASTASES TO BONE [None]
  - VASOGENIC CEREBRAL OEDEMA [None]
